FAERS Safety Report 18333710 (Version 1)
Quarter: 2020Q4

REPORT INFORMATION
  Report Type: Spontaneous
  Country: US (occurrence: US)
  Receive Date: 20201001
  Receipt Date: 20201001
  Transmission Date: 20210113
  Serious: Yes (Life-Threatening, Hospitalization, Other)
  Sender: FDA-Public Use
  Company Number: US-UNITED THERAPEUTICS-UNT-2020-014510

PATIENT
  Age: 63 Year
  Sex: Female

DRUGS (2)
  1. ORENITRAM [Suspect]
     Active Substance: TREPROSTINIL
     Indication: PULMONARY ARTERIAL HYPERTENSION
     Dosage: UNK
     Route: 048
  2. RIOCIGUAT. [Suspect]
     Active Substance: RIOCIGUAT
     Indication: PULMONARY ARTERIAL HYPERTENSION
     Route: 065

REACTIONS (8)
  - Nausea [Unknown]
  - Accidental overdose [Unknown]
  - Vasoplegia syndrome [Recovering/Resolving]
  - Stress cardiomyopathy [Recovering/Resolving]
  - Acute respiratory failure [Recovering/Resolving]
  - Vomiting [Unknown]
  - Wrong technique in product usage process [Unknown]
  - Product use issue [Unknown]
